FAERS Safety Report 5530130-2 (Version None)
Quarter: 2007Q4

REPORT INFORMATION
  Report Type: 
  Country: None (occurrence: None)
  Receive Date: 20071130
  Receipt Date: 20071126
  Transmission Date: 20080405
  Serious: Yes (Other)
  Sender: FDA-Public Use
  Company Number: PHEH2007US15151

PATIENT
  Age: 69 Year
  Sex: Male

DRUGS (2)
  1. EXJADE [Suspect]
     Indication: TRANSFUSION
     Route: 048
     Dates: start: 20070201, end: 20070801
  2. EXJADE [Suspect]
     Dosage: 40 MG/KG, UNK
     Route: 048
     Dates: start: 20070801

REACTIONS (4)
  - ANAEMIA [None]
  - PLATELET COUNT DECREASED [None]
  - RETINAL HAEMORRHAGE [None]
  - VISUAL ACUITY REDUCED [None]
